FAERS Safety Report 23299577 (Version 1)
Quarter: 2023Q4

REPORT INFORMATION
  Report Type: Spontaneous
  Country: AT (occurrence: AT)
  Receive Date: 20231215
  Receipt Date: 20231215
  Transmission Date: 20240110
  Serious: Yes (Other)
  Sender: FDA-Public Use
  Company Number: AT-ABBVIE-5535845

PATIENT
  Age: 40 Year
  Sex: Female

DRUGS (2)
  1. SKYRIZI [Suspect]
     Active Substance: RISANKIZUMAB-RZAA
     Indication: Product used for unknown indication
     Dosage: FREQUENCY TEXT: 2 UNITS OF 75MG EVERY 12 WEEKS?START DATE TEXT: 2 UNITS EVERY 12 WEEKS
     Route: 058
     Dates: start: 202303
  2. SKYRIZI [Suspect]
     Active Substance: RISANKIZUMAB-RZAA
     Dosage: FREQUENCY TEXT: 2 DOSES OF 75MG AT WEEK 0, 4
     Route: 058
     Dates: start: 201905, end: 202209

REACTIONS (2)
  - Breast cancer female [Recovered/Resolved]
  - Psoriasis [Recovering/Resolving]

NARRATIVE: CASE EVENT DATE: 20220101
